FAERS Safety Report 17390078 (Version 1)
Quarter: 2020Q1

REPORT INFORMATION
  Report Type: Spontaneous
  Country: JP (occurrence: JP)
  Receive Date: 20200207
  Receipt Date: 20200207
  Transmission Date: 20200409
  Serious: Yes (Hospitalization)
  Sender: FDA-Public Use
  Company Number: JP-JNJFOC-20180619845

PATIENT
  Age: 76 Year
  Sex: Male
  Weight: 53 kg

DRUGS (2)
  1. AZELNIDIPINE [Concomitant]
     Active Substance: AZELNIDIPINE
     Dosage: 16 MG, OM
  2. RIVAROXABAN [Suspect]
     Active Substance: RIVAROXABAN
     Indication: PRODUCT USED FOR UNKNOWN INDICATION
     Dosage: 15 MG, OM
     Route: 048

REACTIONS (3)
  - Drug-disease interaction [Unknown]
  - Spinal epidural haematoma [Recovering/Resolving]
  - Prothrombin time prolonged [Unknown]
